FAERS Safety Report 25510366 (Version 1)
Quarter: 2025Q3

REPORT INFORMATION
  Report Type: Spontaneous
  Country: US (occurrence: None)
  Receive Date: 20250703
  Receipt Date: 20250703
  Transmission Date: 20251021
  Serious: Yes (Hospitalization)
  Sender: FDA-CTU
  Company Number: None

PATIENT
  Age: 43 Year
  Sex: Female
  Weight: 61 kg

DRUGS (1)
  1. ANIFROLUMAB [Suspect]
     Active Substance: ANIFROLUMAB
     Indication: Systemic lupus erythematosus
     Route: 041
     Dates: start: 20250605

REACTIONS (5)
  - Abdominal pain [None]
  - Nausea [None]
  - Vomiting [None]
  - Diarrhoea [None]
  - Infusion related reaction [None]

NARRATIVE: CASE EVENT DATE: 20250701
